FAERS Safety Report 8493326 (Version 3)
Quarter: 2014Q3

REPORT INFORMATION
  Report Type: Spontaneous
  Country: ES (occurrence: ES)
  Receive Date: 20120404
  Receipt Date: 20140729
  Transmission Date: 20150326
  Serious: Yes (Other)
  Sender: FDA-Public Use
  Company Number: ES-RANBAXY-2012RR-55090

PATIENT
  Age: 23 Year
  Sex: Female

DRUGS (2)
  1. NOLOTIL [Suspect]
     Active Substance: METAMIZOLE
     Indication: PYELONEPHRITIS ACUTE
     Dosage: 2 G, TID
     Route: 042
  2. AMOXICILLIN/CLAVULANIC ACID [Suspect]
     Active Substance: AMOXICILLIN\CLAVULANIC ACID
     Indication: PYELONEPHRITIS ACUTE
     Dosage: UNK
     Route: 065

REACTIONS (4)
  - Syncope [Unknown]
  - Oligohydramnios [Unknown]
  - Exposure during pregnancy [Unknown]
  - Premature delivery [Unknown]
